FAERS Safety Report 7011713-X (Version None)
Quarter: 2010Q3

REPORT INFORMATION
  Report Type: 
  Country: None (occurrence: None)
  Receive Date: 20100923
  Receipt Date: 20090713
  Transmission Date: 20110219
  Serious: Yes (Other)
  Sender: FDA-Public Use
  Company Number: US-WYE-H09041109

PATIENT
  Sex: Female

DRUGS (5)
  1. PREMARIN [Suspect]
     Indication: HOT FLUSH
     Route: 048
     Dates: start: 19960801
  2. VIVELLE [Suspect]
     Indication: MENOPAUSE
     Dosage: UNSPECIFIED
     Route: 062
     Dates: start: 19990101, end: 20070601
  3. PROMETRIUM [Suspect]
     Indication: MENOPAUSE
     Dosage: 200 MG DAILY
     Dates: start: 19990101, end: 20070601
  4. PROVERA [Suspect]
     Indication: HOT FLUSH
     Dosage: UNSPECIFIED
     Route: 048
     Dates: start: 19960901
  5. CLIMARA [Suspect]
     Indication: MENOPAUSE
     Dosage: 0.05 MG (DAILY DOSE)
     Route: 062
     Dates: start: 19960921, end: 20011005

REACTIONS (2)
  - BREAST CANCER [None]
  - MEMORY IMPAIRMENT [None]
